FAERS Safety Report 8093963 (Version 2)
Quarter: 2014Q3

REPORT INFORMATION
  Report Type: Spontaneous
  Country: AU (occurrence: AU)
  Receive Date: 20110817
  Receipt Date: 20140707
  Transmission Date: 20150326
  Serious: Yes (Other)
  Sender: FDA-Public Use
  Company Number: AU-B.I. PHARMACEUTICALS,INC./RIDGEFIELD-2011-AU-00868AU

PATIENT
  Age: 75 Year
  Sex: Male

DRUGS (6)
  1. NOTEN [Concomitant]
     Active Substance: ATENOLOL
     Route: 065
  2. AVAPRO [Concomitant]
     Active Substance: IRBESARTAN
     Dosage: 300 MG
     Route: 065
  3. NATRILIX SR [Concomitant]
     Active Substance: INDAPAMIDE
     Dosage: 1.5 MG
     Route: 065
  4. PRADAXA [Suspect]
     Active Substance: DABIGATRAN ETEXILATE MESYLATE
     Indication: ATRIAL FIBRILLATION
     Dosage: 220 MG
     Route: 065
     Dates: start: 20110718
  5. CRESTOR [Concomitant]
     Active Substance: ROSUVASTATIN CALCIUM
     Dosage: 10 MG
     Route: 065
  6. ARATAC [Concomitant]
     Route: 065

REACTIONS (5)
  - Large intestinal haemorrhage [Unknown]
  - Colon cancer [Unknown]
  - Lung neoplasm malignant [Unknown]
  - Gastrointestinal haemorrhage [Recovered/Resolved]
  - Rectal haemorrhage [Recovered/Resolved]

NARRATIVE: CASE EVENT DATE: 20110725
